FAERS Safety Report 5075315-7 (Version None)
Quarter: 2006Q2

REPORT INFORMATION
  Report Type: 
  Country: None (occurrence: None)
  Receive Date: 20060307
  Receipt Date: 20060307
  Transmission Date: 20061013
  Serious: No
  Sender: FDA-Public Use
  Company Number: None

PATIENT
  Age: 61 Year
  Sex: Male

DRUGS (2)
  1. TRICOR [Suspect]
     Indication: HYPERLIPIDAEMIA
     Dosage: 1 TAB QD ORAL
     Route: 048
     Dates: start: 20050301, end: 20050601
  2. ZOCOR [Suspect]
     Dosage: 1 TAB QHS ORAL
     Route: 048
     Dates: start: 20050301, end: 20050601

REACTIONS (1)
  - MYOPATHY [None]
